FAERS Safety Report 6786892-X (Version None)
Quarter: 2010Q2

REPORT INFORMATION
  Report Type: 
  Country: None (occurrence: None)
  Receive Date: 20100621
  Receipt Date: 20100611
  Transmission Date: 20101027
  Serious: Yes (Hospitalization)
  Sender: FDA-Public Use
  Company Number: GER/SPN/10/0013703

PATIENT
  Age: 50 Year
  Sex: Female

DRUGS (4)
  1. IBUPROFEN [Suspect]
     Indication: ACUTE SINUSITIS
     Dates: start: 20050601
  2. EPINEPHRINE [Suspect]
     Indication: DRUG USE FOR UNKNOWN INDICATION
     Dosage: SUBCUTANEOUS
     Route: 058
     Dates: start: 20050601
  3. AMOXICILLIN [Concomitant]
  4. CLAVULANIC ACID (CLAVULANIC ACID) [Concomitant]

REACTIONS (5)
  - HYPOTENSION [None]
  - KOUNIS SYNDROME [None]
  - MYOCARDIAL INFARCTION [None]
  - OXYGEN SATURATION DECREASED [None]
  - VENTRICULAR TACHYCARDIA [None]
